FAERS Safety Report 14431291 (Version 2)
Quarter: 2018Q2

REPORT INFORMATION
  Report Type: Spontaneous
  Country: US (occurrence: US)
  Receive Date: 20180124
  Receipt Date: 20180620
  Transmission Date: 20180711
  Serious: No
  Sender: FDA-Public Use
  Company Number: US-PFIZER INC-2018027066

PATIENT
  Age: 66 Year
  Sex: Female

DRUGS (2)
  1. IBRANCE [Suspect]
     Active Substance: PALBOCICLIB
     Indication: BREAST CANCER FEMALE
     Dosage: 100 MG, CYCLIC[TAKE ONE CAPSULE ONCE DAILY WITH FOOD FOR 21 DAYS, THEN 7 DAYS OFF]
     Route: 048
  2. IBRANCE [Suspect]
     Active Substance: PALBOCICLIB
     Dosage: 100 MG, CYCLIC[TAKE ONE CAPSULE ONCE DAILY WITH FOOD FOR 21 DAYS, THEN 7 DAYS OFF]
     Route: 048

REACTIONS (2)
  - Fatigue [Unknown]
  - Pain in extremity [Unknown]
